FAERS Safety Report 7561749-5 (Version None)
Quarter: 2011Q2

REPORT INFORMATION
  Report Type: 
  Country: None (occurrence: None)
  Receive Date: 20110621
  Receipt Date: 20110610
  Transmission Date: 20111010
  Serious: Yes (Disabling, Other)
  Sender: FDA-Public Use
  Company Number: AU-PFIZER INC-2011082585

PATIENT
  Age: 65 Year
  Sex: Male
  Weight: 74 kg

DRUGS (2)
  1. PRISTIQ [Suspect]
     Indication: DEPRESSION
     Dosage: 100 MG, 1X/DAY
     Route: 048
     Dates: start: 20101201
  2. LITHIUM CARBONATE [Suspect]
     Indication: DEPRESSION
     Dosage: 250 MG, 2X/DAY
     Dates: start: 20110201

REACTIONS (3)
  - LIBIDO DECREASED [None]
  - WRONG TECHNIQUE IN DRUG USAGE PROCESS [None]
  - PROSTATISM [None]
